FAERS Safety Report 25396475 (Version 1)
Quarter: 2025Q2

REPORT INFORMATION
  Report Type: Spontaneous
  Country: US (occurrence: None)
  Receive Date: 20250603
  Receipt Date: 20250603
  Transmission Date: 20250716
  Serious: Yes (Other)
  Sender: FDA-CTU
  Company Number: None

PATIENT
  Age: 49 Year
  Sex: Male
  Weight: 69.75 kg

DRUGS (1)
  1. GAMMAKED [Suspect]
     Active Substance: HUMAN IMMUNOGLOBULIN G
     Indication: Stiff person syndrome
     Route: 042
     Dates: start: 20250527

REACTIONS (4)
  - Rash erythematous [None]
  - Night sweats [None]
  - Muscle spasms [None]
  - Rash [None]

NARRATIVE: CASE EVENT DATE: 20250531
